FAERS Safety Report 17427490 (Version 3)
Quarter: 2020Q1

REPORT INFORMATION
  Report Type: Spontaneous
  Country: JP (occurrence: JP)
  Receive Date: 20200217
  Receipt Date: 20200228
  Transmission Date: 20200409
  Serious: Yes (Death, Other)
  Sender: FDA-Public Use
  Company Number: JP-OTSUKA-2020_004360

PATIENT
  Age: 6 Decade
  Sex: Male

DRUGS (7)
  1. SERENACE [Concomitant]
     Active Substance: HALOPERIDOL
     Indication: PRODUCT USED FOR UNKNOWN INDICATION
     Dosage: UNK
     Route: 065
     Dates: end: 202001
  2. ZOTEPINE [Concomitant]
     Active Substance: ZOTEPINE
     Indication: PRODUCT USED FOR UNKNOWN INDICATION
     Dosage: UNK
     Route: 065
  3. DANTROLENE SODIUM. [Suspect]
     Active Substance: DANTROLENE SODIUM
     Indication: PRODUCT USED FOR UNKNOWN INDICATION
     Dosage: UNK
     Route: 065
  4. LEVOTOMIN [Concomitant]
     Active Substance: LEVOMEPROMAZINE
     Indication: PRODUCT USED FOR UNKNOWN INDICATION
     Dosage: UNK
     Route: 065
     Dates: end: 202001
  5. RISPERIDONE. [Concomitant]
     Active Substance: RISPERIDONE
     Indication: PRODUCT USED FOR UNKNOWN INDICATION
     Dosage: 12 MG, DAILY DOSE
     Route: 048
  6. REXULTI [Suspect]
     Active Substance: BREXPIPRAZOLE
     Indication: SCHIZOPHRENIA
     Dosage: UNK
     Route: 048
     Dates: start: 202001, end: 20200203
  7. OLANZAPINE. [Concomitant]
     Active Substance: OLANZAPINE
     Indication: PRODUCT USED FOR UNKNOWN INDICATION
     Dosage: 5 MG, DAILY DOSE
     Route: 048
     Dates: start: 202001

REACTIONS (6)
  - Musculoskeletal stiffness [Unknown]
  - Blood creatine phosphokinase increased [Unknown]
  - Serotonin syndrome [Unknown]
  - Respiratory depression [Fatal]
  - Depressed level of consciousness [Unknown]
  - Pyrexia [Unknown]

NARRATIVE: CASE EVENT DATE: 20200203
